FAERS Safety Report 13255693 (Version 1)
Quarter: 2017Q1

REPORT INFORMATION
  Report Type: Report from Study
  Country: US (occurrence: US)
  Receive Date: 20170221
  Receipt Date: 20170221
  Transmission Date: 20170428
  Serious: Yes (Other)
  Sender: FDA-Public Use
  Company Number: US-PFIZER INC-2017059596

PATIENT
  Age: 65 Year
  Sex: Female

DRUGS (2)
  1. IBRANCE [Suspect]
     Active Substance: PALBOCICLIB
     Indication: BREAST CANCER
     Dosage: 100 MG, ONCE DAILY, 21 DAYS ON, 7 DAYS OFF (28-DAY CYCLE)
     Route: 048
     Dates: start: 20160301, end: 20160907
  2. IBRANCE [Suspect]
     Active Substance: PALBOCICLIB
     Dosage: 75 MG, ONCE DAILY, 21 DAYS ON, 7 DAYS OFF (28-DAY CYCLE)
     Route: 048
     Dates: start: 20160908

REACTIONS (3)
  - Pneumonia [Unknown]
  - Bone marrow failure [Unknown]
  - Fatigue [Unknown]

NARRATIVE: CASE EVENT DATE: 2016
